FAERS Safety Report 19028695 (Version 1)
Quarter: 2021Q1

REPORT INFORMATION
  Report Type: Spontaneous
  Country: US (occurrence: US)
  Receive Date: 20210319
  Receipt Date: 20210319
  Transmission Date: 20210420
  Serious: No
  Sender: FDA-Public Use
  Company Number: US-TOLMAR, INC.-21US025844

PATIENT
  Sex: Female

DRUGS (1)
  1. CALCIPOTRIENE. [Suspect]
     Active Substance: CALCIPOTRIENE
     Indication: LOCALISED INFECTION
     Route: 065

REACTIONS (2)
  - Intentional product misuse [Unknown]
  - Product dispensing error [Unknown]
